FAERS Safety Report 18107454 (Version 1)
Quarter: 2020Q3

REPORT INFORMATION
  Report Type: Spontaneous
  Country: US (occurrence: US)
  Receive Date: 20200804
  Receipt Date: 20200804
  Transmission Date: 20201103
  Serious: Yes (Other)
  Sender: FDA-Public Use
  Company Number: None

PATIENT
  Age: 76 Year
  Sex: Female
  Weight: 67.5 kg

DRUGS (1)
  1. MACROBID [Suspect]
     Active Substance: NITROFURANTOIN\NITROFURANTOIN MONOHYDRATE
     Indication: UTERINE INFECTION
     Dates: start: 20200803, end: 20200803

REACTIONS (6)
  - Diarrhoea [None]
  - Headache [None]
  - Influenza [None]
  - Malaise [None]
  - Vomiting [None]
  - Pain [None]

NARRATIVE: CASE EVENT DATE: 20200803
